FAERS Safety Report 8262724-8 (Version None)
Quarter: 2012Q2

REPORT INFORMATION
  Report Type: 
  Country: None (occurrence: None)
  Receive Date: 20120405
  Receipt Date: 20120326
  Transmission Date: 20120825
  Serious: Yes (Death, Life-Threatening, Hospitalization)
  Sender: FDA-Public Use
  Company Number: ES-ABBOTT-12P-144-0897490-02

PATIENT
  Sex: Male
  Weight: 72 kg

DRUGS (20)
  1. PLAVIX [Concomitant]
     Indication: ANTICOAGULANT THERAPY
     Route: 048
     Dates: start: 20080404
  2. ATORVASTATIN [Concomitant]
     Indication: HYPERCHOLESTEROLAEMIA
     Route: 048
     Dates: start: 20060215, end: 20070507
  3. OMEPRAZOLE [Concomitant]
     Indication: PROPHYLAXIS
  4. EZETIMIBE [Concomitant]
     Indication: ACUTE CORONARY SYNDROME
     Route: 048
     Dates: start: 20080404
  5. EPLERENONE [Concomitant]
     Indication: ACUTE CORONARY SYNDROME
     Route: 048
     Dates: start: 20090601
  6. GABAPENTIN [Concomitant]
     Route: 048
     Dates: start: 20040922
  7. METOPROLOL SUCCINATE [Concomitant]
     Indication: ACUTE CORONARY SYNDROME
     Route: 048
     Dates: start: 20080404
  8. PLAVIX [Concomitant]
     Indication: ISCHAEMIC CARDIOMYOPATHY
     Route: 048
     Dates: start: 20070512
  9. RAMIPRIL [Concomitant]
     Indication: ACUTE CORONARY SYNDROME
     Route: 048
     Dates: start: 20080404
  10. ATORVASTATIN [Concomitant]
     Dates: start: 20090601
  11. CARVEDILOL [Concomitant]
     Indication: ACUTE CORONARY SYNDROME
     Dates: start: 20090601
  12. HUMIRA [Suspect]
     Indication: RHEUMATOID ARTHRITIS
     Route: 058
     Dates: start: 20040101, end: 20111215
  13. OMEPRAZOLE [Concomitant]
     Indication: GASTRIC DISORDER
     Route: 048
     Dates: start: 20020608
  14. ASPIRIN [Concomitant]
     Indication: ANTICOAGULANT THERAPY
     Route: 048
     Dates: start: 20080404
  15. DEFLAZACORT [Concomitant]
     Indication: RHEUMATOID ARTHRITIS
     Dates: start: 20100122
  16. GABAPENTIN [Concomitant]
     Indication: PERIPHERAL SENSORY NEUROPATHY
     Route: 048
     Dates: start: 20040907, end: 20040921
  17. CLORAZEPATE DIPOTASSIUM [Concomitant]
     Indication: ANXIOLYTIC THERAPY
     Route: 048
     Dates: start: 20080404
  18. EPLERENONE [Concomitant]
     Indication: ISCHAEMIC CARDIOMYOPATHY
     Route: 048
     Dates: start: 20070512, end: 20080326
  19. CARVEDILOL [Concomitant]
     Indication: ISCHAEMIC CARDIOMYOPATHY
     Dates: start: 20070512, end: 20080326
  20. CLOPIDOGREL [Concomitant]
     Indication: ISCHAEMIC CARDIOMYOPATHY
     Route: 048
     Dates: start: 20070512

REACTIONS (4)
  - CRANIOCEREBRAL INJURY [None]
  - CARDIAC ARREST [None]
  - PNEUMONIA [None]
  - SEPSIS [None]
